FAERS Safety Report 23906704 (Version 1)
Quarter: 2024Q2

REPORT INFORMATION
  Report Type: Other
  Country: US (occurrence: None)
  Receive Date: 20240528
  Receipt Date: 20240528
  Transmission Date: 20240716
  Serious: No
  Sender: FDA-Public Use
  Company Number: US-ROCHE-3566342

PATIENT
  Age: 64 Year
  Sex: Male
  Weight: 74.91 kg

DRUGS (5)
  1. OCREVUS [Suspect]
     Active Substance: OCRELIZUMAB
     Indication: Multiple sclerosis
     Route: 042
  2. ENTECAVIR [Concomitant]
     Active Substance: ENTECAVIR
     Route: 048
     Dates: start: 20240509
  3. VITAMIN D3 [Concomitant]
     Active Substance: CHOLECALCIFEROL
     Dosage: TAKE EVERY FRIDAY, SATURDAY, AND SUNDAY ;ONGOING: YES
     Route: 048
     Dates: start: 202402
  4. VITAMIN D3 [Concomitant]
     Active Substance: CHOLECALCIFEROL
     Route: 048
     Dates: start: 202402
  5. BIOTIN [Concomitant]
     Active Substance: BIOTIN
     Indication: Alopecia
     Route: 048

REACTIONS (7)
  - Hepatitis B [Not Recovered/Not Resolved]
  - Memory impairment [Not Recovered/Not Resolved]
  - Dysarthria [Not Recovered/Not Resolved]
  - Weight increased [Recovered/Resolved]
  - Alopecia [Unknown]
  - Gastrooesophageal reflux disease [Not Recovered/Not Resolved]
  - Balance disorder [Not Recovered/Not Resolved]

NARRATIVE: CASE EVENT DATE: 20230101
